FAERS Safety Report 14003703 (Version 1)
Quarter: 2017Q3

REPORT INFORMATION
  Report Type: Spontaneous
  Country: US (occurrence: US)
  Receive Date: 20170922
  Receipt Date: 20170922
  Transmission Date: 20171128
  Serious: No
  Sender: FDA-Public Use
  Company Number: US-JNJFOC-20170710046

PATIENT
  Sex: Male

DRUGS (7)
  1. OXYCODONE [Concomitant]
     Active Substance: OXYCODONE
     Route: 065
  2. DURAGESIC [Suspect]
     Active Substance: FENTANYL
     Indication: PAIN
     Dosage: STRENGTH: 75 MCG/HR, TWO PATCHES EVERY OTHER DAY
     Route: 062
  3. CLOPIDINE [Concomitant]
     Route: 065
  4. DURAGESIC [Suspect]
     Active Substance: FENTANYL
     Indication: PAIN
     Dosage: STRENGTH: 75 MCG/HR
     Route: 062
     Dates: start: 2006, end: 2009
  5. DURAGESIC [Suspect]
     Active Substance: FENTANYL
     Indication: PAIN
     Dosage: DOSE: 50 MCG/HR PLUS 75 MCG/HR
     Route: 062
     Dates: start: 2005, end: 2006
  6. DURAGESIC [Suspect]
     Active Substance: FENTANYL
     Indication: PAIN
     Dosage: STRENGTH: 75 MCG/HR
     Route: 062
     Dates: start: 2009
  7. DRONABINOL. [Concomitant]
     Active Substance: DRONABINOL
     Route: 065

REACTIONS (3)
  - Product storage error [Unknown]
  - Product colour issue [Unknown]
  - Product physical issue [Unknown]

NARRATIVE: CASE EVENT DATE: 20170711
